FAERS Safety Report 5162336-9 (Version None)
Quarter: 2006Q4

REPORT INFORMATION
  Report Type: 
  Country: None (occurrence: None)
  Receive Date: 20061130
  Receipt Date: 20061120
  Transmission Date: 20070319
  Serious: Yes (Hospitalization, Other)
  Sender: FDA-Public Use
  Company Number: PHBS2006NG18377

PATIENT
  Age: 48 Year
  Sex: Male

DRUGS (4)
  1. AZATHIOPRINE [Concomitant]
  2. PREDNISOLONE [Concomitant]
  3. MYCOPHENOLATE MOFETIL [Concomitant]
  4. CYCLOSPORINE [Suspect]
     Indication: RENAL TRANSPLANT

REACTIONS (17)
  - ABDOMINAL DISCOMFORT [None]
  - BLOOD CREATININE INCREASED [None]
  - DEHYDRATION [None]
  - DRUG LEVEL INCREASED [None]
  - GASTROINTESTINAL DISORDER [None]
  - KAPOSI'S SARCOMA [None]
  - KIDNEY TRANSPLANT REJECTION [None]
  - NEPHROPATHY TOXIC [None]
  - OEDEMA PERIPHERAL [None]
  - PROTEINURIA [None]
  - PYREXIA [None]
  - RENAL IMPAIRMENT [None]
  - RENAL PAIN [None]
  - SCROTAL SWELLING [None]
  - SKIN NODULE [None]
  - URINE OUTPUT DECREASED [None]
  - VOMITING [None]
